FAERS Safety Report 7983135-6 (Version None)
Quarter: 2011Q4

REPORT INFORMATION
  Report Type: 
  Country: None (occurrence: None)
  Receive Date: 20111215
  Receipt Date: 20111202
  Transmission Date: 20120403
  Serious: Yes (Other)
  Sender: FDA-Public Use
  Company Number: US-MYLANLABS-2011S1025225

PATIENT
  Sex: Male

DRUGS (7)
  1. VERAPAMIL [Suspect]
     Route: 048
  2. SPIRONOLACTONE [Concomitant]
     Route: 065
  3. VERAPAMIL [Suspect]
     Route: 042
  4. POTASSIUM CHLORIDE [Concomitant]
     Route: 065
  5. MAGNESIUM SULFATE [Concomitant]
     Route: 065
  6. PROPRANOLOL [Concomitant]
     Route: 048
  7. ESMOLOL HCL [Concomitant]
     Route: 065

REACTIONS (1)
  - TORSADE DE POINTES [None]
